FAERS Safety Report 17803063 (Version 1)
Quarter: 2020Q2

REPORT INFORMATION
  Report Type: Spontaneous
  Country: CR (occurrence: CR)
  Receive Date: 20200519
  Receipt Date: 20200519
  Transmission Date: 20200714
  Serious: Yes (Other)
  Sender: FDA-Public Use
  Company Number: CR-PFIZER INC-2020197455

PATIENT
  Age: 70 Year
  Sex: Male

DRUGS (1)
  1. LIPITOR [Suspect]
     Active Substance: ATORVASTATIN CALCIUM
     Dosage: HALF A PILL, DAILY
     Route: 048

REACTIONS (4)
  - Blood pressure abnormal [Unknown]
  - Parkinson^s disease [Unknown]
  - Blood glucose abnormal [Unknown]
  - Gait inability [Unknown]
